FAERS Safety Report 5515894-6 (Version None)
Quarter: 2007Q4

REPORT INFORMATION
  Report Type: 
  Country: None (occurrence: None)
  Receive Date: 20071109
  Receipt Date: 20071024
  Transmission Date: 20080405
  Serious: Yes (Death)
  Sender: FDA-Public Use
  Company Number: GXKR2007GB09095

PATIENT
  Age: 86 Year
  Sex: Female

DRUGS (1)
  1. AMPICILLIN [Suspect]
     Indication: RESPIRATORY TRACT INFECTION

REACTIONS (3)
  - FALL [None]
  - PSEUDOMEMBRANOUS COLITIS [None]
  - SHOCK [None]
